FAERS Safety Report 7670824-6 (Version None)
Quarter: 2011Q3

REPORT INFORMATION
  Report Type: 
  Country: None (occurrence: None)
  Receive Date: 20110809
  Receipt Date: 20110804
  Transmission Date: 20111222
  Serious: Yes (Life-Threatening)
  Sender: FDA-Public Use
  Company Number: CA-US-EMD SERONO, INC.-7058324

PATIENT
  Sex: Male
  Weight: 70 kg

DRUGS (4)
  1. SAIZEN [Suspect]
     Indication: GROWTH HORMONE DEFICIENCY
     Route: 058
     Dates: start: 19991025, end: 20020606
  2. CORTEF [Concomitant]
     Route: 048
     Dates: start: 19990501
  3. SYNTHROID [Concomitant]
     Indication: SECONDARY HYPOTHYROIDISM
     Route: 048
     Dates: start: 20000101
  4. CORTEF [Concomitant]
     Indication: ISOLATED ADRENOCORTICOTROPIC HORMONE DEFICIENCY
     Route: 048
     Dates: start: 19990501

REACTIONS (1)
  - ADRENOCORTICAL INSUFFICIENCY ACUTE [None]
